FAERS Safety Report 8381780-X (Version None)
Quarter: 2012Q2

REPORT INFORMATION
  Report Type: 
  Country: None (occurrence: None)
  Receive Date: 20120524
  Receipt Date: 20120515
  Transmission Date: 20120825
  Serious: Yes (Other)
  Sender: FDA-Public Use
  Company Number: US-BRISTOL-MYERS SQUIBB COMPANY-16594814

PATIENT
  Sex: Male

DRUGS (2)
  1. PRISTIQ [Suspect]
  2. ABILIFY [Suspect]

REACTIONS (2)
  - MANIA [None]
  - DRUG DOSE OMISSION [None]
